FAERS Safety Report 8350932-7 (Version None)
Quarter: 2012Q2

REPORT INFORMATION
  Report Type: 
  Country: None (occurrence: None)
  Receive Date: 20120510
  Receipt Date: 20120425
  Transmission Date: 20120825
  Serious: Yes (Other)
  Sender: FDA-Public Use
  Company Number: US-ENDO PHARMACEUTICALS INC.-OPCR20120514

PATIENT
  Sex: Female

DRUGS (7)
  1. SEROQUEL XR [Concomitant]
     Indication: PRODUCT USED FOR UNKNOWN INDICATION
     Dosage: UNK
     Route: 048
  2. OXYCODONE HCL [Concomitant]
     Indication: PRODUCT USED FOR UNKNOWN INDICATION
     Route: 048
  3. OPANA ER [Suspect]
     Indication: PAIN
     Route: 048
     Dates: start: 20120423
  4. OPANA ER [Concomitant]
     Indication: PAIN
     Route: 048
     Dates: end: 20120401
  5. SOMA [Concomitant]
     Indication: PRODUCT USED FOR UNKNOWN INDICATION
     Route: 048
  6. LUNESTA [Concomitant]
     Indication: PRODUCT USED FOR UNKNOWN INDICATION
     Dosage: UNK
     Route: 048
  7. XANAX [Concomitant]
     Indication: PRODUCT USED FOR UNKNOWN INDICATION
     Dosage: UNK
     Route: 048

REACTIONS (8)
  - DIARRHOEA [None]
  - FATIGUE [None]
  - CHILLS [None]
  - LOSS OF CONSCIOUSNESS [None]
  - ASTHENIA [None]
  - BLOOD PRESSURE DECREASED [None]
  - NAUSEA [None]
  - DRUG INEFFECTIVE [None]
